FAERS Safety Report 7055606-0 (Version None)
Quarter: 2010Q4

REPORT INFORMATION
  Report Type: 
  Country: None (occurrence: None)
  Receive Date: 20101021
  Receipt Date: 20101012
  Transmission Date: 20110411
  Serious: Yes (Other)
  Sender: FDA-Public Use
  Company Number: JP-NOVOPROD-316434

PATIENT
  Age: 60 Year
  Sex: Female
  Weight: 58 kg

DRUGS (3)
  1. VICTOZA [Suspect]
     Indication: TYPE 2 DIABETES MELLITUS
     Dosage: 0.3 MG DAILY
     Route: 058
     Dates: start: 20100925, end: 20101005
  2. LIPITOR [Concomitant]
     Dosage: 10MG/PO
     Dates: start: 20100925, end: 20101005
  3. AMARYL [Concomitant]
     Dosage: 1 MG, UNK
     Route: 048
     Dates: start: 20100925, end: 20101005

REACTIONS (1)
  - KETOSIS [None]
